FAERS Safety Report 14157524 (Version 14)
Quarter: 2022Q3

REPORT INFORMATION
  Report Type: Spontaneous
  Country: US (occurrence: US)
  Receive Date: 20171103
  Receipt Date: 20220803
  Transmission Date: 20221027
  Serious: Yes (Life-Threatening, Hospitalization, Other)
  Sender: FDA-Public Use
  Company Number: PHHY2017US161533

PATIENT
  Age: 5 Year
  Sex: Male
  Weight: 20 kg

DRUGS (14)
  1. CYCLOSPORINE [Suspect]
     Active Substance: CYCLOSPORINE
     Indication: Juvenile idiopathic arthritis
     Dosage: 45 MG
     Route: 048
     Dates: start: 20161030, end: 20170701
  2. CYCLOSPORINE [Suspect]
     Active Substance: CYCLOSPORINE
     Indication: Haemophagocytic lymphohistiocytosis
     Dosage: UNK
     Route: 048
     Dates: start: 20170313
  3. CYCLOSPORINE [Suspect]
     Active Substance: CYCLOSPORINE
     Indication: Immunosuppressant drug therapy
     Dosage: UNK
     Route: 048
     Dates: start: 20170610
  4. CYCLOSPORINE [Suspect]
     Active Substance: CYCLOSPORINE
     Dosage: 70 MG
     Route: 048
     Dates: start: 20170701
  5. KINERET [Suspect]
     Active Substance: ANAKINRA
     Indication: Juvenile idiopathic arthritis
     Dosage: 60 MG
     Route: 042
     Dates: start: 20120701, end: 20130101
  6. KINERET [Suspect]
     Active Substance: ANAKINRA
     Indication: Haemophagocytic lymphohistiocytosis
     Dosage: 100 MG
     Route: 042
     Dates: start: 20160324, end: 20170127
  7. KINERET [Suspect]
     Active Substance: ANAKINRA
     Indication: Immunosuppressant drug therapy
     Dosage: 100 MG
     Route: 042
     Dates: start: 20170213, end: 20170324
  8. KINERET [Suspect]
     Active Substance: ANAKINRA
     Dosage: UNK
     Route: 042
     Dates: start: 20170314
  9. KINERET [Suspect]
     Active Substance: ANAKINRA
     Dosage: 100 MG
     Route: 042
     Dates: start: 20170324, end: 20170602
  10. KINERET [Suspect]
     Active Substance: ANAKINRA
     Dosage: 100 MG
     Route: 042
     Dates: start: 20170602, end: 20170701
  11. KINERET [Suspect]
     Active Substance: ANAKINRA
     Dosage: UNK
     Route: 042
     Dates: start: 20170610
  12. ACTEMRA [Suspect]
     Active Substance: TOCILIZUMAB
     Indication: Juvenile idiopathic arthritis
     Dosage: UNK
     Route: 065
  13. ACTEMRA [Suspect]
     Active Substance: TOCILIZUMAB
     Indication: Immunosuppressant drug therapy
     Dosage: UNK
     Route: 065
     Dates: start: 20170610
  14. ACTEMRA [Suspect]
     Active Substance: TOCILIZUMAB
     Dosage: 320 MG
     Route: 065
     Dates: start: 20170713

REACTIONS (13)
  - Haemophagocytic lymphohistiocytosis [Recovered/Resolved]
  - Condition aggravated [Recovered/Resolved]
  - Sepsis [Recovering/Resolving]
  - Influenza [Recovering/Resolving]
  - Serum ferritin increased [Recovering/Resolving]
  - Dehydration [Recovering/Resolving]
  - Hepatomegaly [Recovering/Resolving]
  - Diarrhoea [Recovering/Resolving]
  - Haemophagocytic lymphohistiocytosis [Recovered/Resolved]
  - Joint swelling [Recovering/Resolving]
  - Rash [Recovering/Resolving]
  - Pyrexia [Recovering/Resolving]
  - Product use in unapproved indication [Unknown]

NARRATIVE: CASE EVENT DATE: 20170314
